FAERS Safety Report 9985285 (Version 3)
Quarter: 2014Q3

REPORT INFORMATION
  Report Type: Spontaneous
  Country: US (occurrence: US)
  Receive Date: 20140307
  Receipt Date: 20140707
  Transmission Date: 20150326
  Serious: No
  Sender: FDA-Public Use
  Company Number: US-GILEAD-2014-0095958

PATIENT
  Sex: Female

DRUGS (2)
  1. LETAIRIS [Suspect]
     Active Substance: AMBRISENTAN
     Indication: INTERSTITIAL LUNG DISEASE
  2. LETAIRIS [Suspect]
     Active Substance: AMBRISENTAN
     Indication: PULMONARY ARTERIAL HYPERTENSION
     Dosage: 10 MG, QD
     Route: 065
     Dates: start: 20130510

REACTIONS (4)
  - Oedema peripheral [Unknown]
  - Fall [Unknown]
  - Dyspnoea [Unknown]
  - Cough [Unknown]
